FAERS Safety Report 5067031-2 (Version None)
Quarter: 2006Q3

REPORT INFORMATION
  Report Type: 
  Country: None (occurrence: None)
  Receive Date: 20060726
  Receipt Date: 20060714
  Transmission Date: 20061208
  Serious: Yes (Death)
  Sender: FDA-Public Use
  Company Number: 2006088829

PATIENT
  Age: 66 Year
  Sex: Female

DRUGS (1)
  1. NORVASC [Suspect]
     Indication: HYPERTENSION

REACTIONS (4)
  - COMPLETED SUICIDE [None]
  - DRUG TOXICITY [None]
  - MENINGIOMA [None]
  - OVERDOSE [None]
